FAERS Safety Report 4503246-7 (Version None)
Quarter: 2004Q4

REPORT INFORMATION
  Report Type: 
  Country: None (occurrence: None)
  Receive Date: 20041112
  Receipt Date: 20041028
  Transmission Date: 20050328
  Serious: Yes (Other)
  Sender: FDA-Public Use
  Company Number: 2004222439JP

PATIENT
  Age: 77 Year
  Sex: Male
  Weight: 47 kg

DRUGS (6)
  1. CAMPTOSAR [Suspect]
     Indication: SMALL CELL LUNG CANCER METASTATIC
     Dosage: 60 MG/M2, CYCLIC, IV DRIP
     Route: 041
     Dates: start: 20040622, end: 20040622
  2. CISPLATIN [Suspect]
     Indication: SMALL CELL LUNG CANCER METASTATIC
     Dosage: 50 MG/M^2, CYCLIC, IV DRIP
     Route: 041
     Dates: start: 20040622, end: 20040622
  3. MS CONTIN [Concomitant]
  4. LOXONIN        (LOXOPROFEN SODIUM) [Concomitant]
  5. MUCOSTA              (REBAMIPIDE) [Concomitant]
  6. SOLU-MEDROL [Concomitant]

REACTIONS (6)
  - DEHYDRATION [None]
  - GASTROINTESTINAL ULCER [None]
  - INTESTINAL ISCHAEMIA [None]
  - MELAENA [None]
  - PYREXIA [None]
  - ULCER [None]
